FAERS Safety Report 10413284 (Version 1)
Quarter: 2014Q3

REPORT INFORMATION
  Report Type: Spontaneous
  Country: None (occurrence: None)
  Receive Date: 20140825
  Receipt Date: 20140825
  Transmission Date: 20150326
  Serious: Yes (Hospitalization, Other)
  Sender: FDA-Public Use
  Company Number: 1713747-2014-999115

PATIENT
  Age: 73 Year
  Sex: Female

DRUGS (32)
  1. LISINOPRIL. [Concomitant]
     Active Substance: LISINOPRIL
  2. DELFLEX [Suspect]
     Active Substance: CALCIUM CHLORIDE\DEXTROSE MONOHYDRATE\MAGNESIUM CHLORIDE\SODIUM CHLORIDE\SODIUM LACTATE
     Indication: PERITONEAL DIALYSIS
     Route: 033
  3. LISINOPRIL. [Concomitant]
     Active Substance: LISINOPRIL
  4. LAMICTAL [Concomitant]
     Active Substance: LAMOTRIGINE
  5. MIRTAZAPINE. [Concomitant]
     Active Substance: MIRTAZAPINE
  6. AMLODIPINE [Concomitant]
     Active Substance: AMLODIPINE BESYLATE
  7. CHOLECALCIFEROL [Concomitant]
     Active Substance: CHOLECALCIFEROL
  8. OXYCODONE [Concomitant]
     Active Substance: OXYCODONE
  9. PROMETHAZINE [Concomitant]
     Active Substance: PROMETHAZINE\PROMETHAZINE HYDROCHLORIDE
  10. SIMVASTATIN. [Concomitant]
     Active Substance: SIMVASTATIN
  11. SENNA [Concomitant]
     Active Substance: SENNA LEAF\SENNOSIDES\SENNOSIDES A AND B
  12. ENALAPRIL [Concomitant]
     Active Substance: ENALAPRIL
  13. HYDROCORTISONE. [Concomitant]
     Active Substance: HYDROCORTISONE
  14. HYDRALAZINE [Concomitant]
     Active Substance: HYDRALAZINE HYDROCHLORIDE
  15. KEPPRA [Concomitant]
     Active Substance: LEVETIRACETAM
  16. SYNTHROID [Concomitant]
     Active Substance: LEVOTHYROXINE SODIUM
  17. ASPIRIN. [Concomitant]
     Active Substance: ASPIRIN
  18. COLACE [Concomitant]
     Active Substance: DOCUSATE SODIUM
  19. LORATIDINE [Concomitant]
     Active Substance: LORATADINE
  20. RENA-VITE [Concomitant]
     Active Substance: VITAMINS
  21. VORVASC [Concomitant]
  22. LAMOTRIGINE. [Concomitant]
     Active Substance: LAMOTRIGINE
  23. VORVASC [Concomitant]
  24. SERTRALINE [Concomitant]
     Active Substance: SERTRALINE HYDROCHLORIDE
  25. MINOXIDIL. [Concomitant]
     Active Substance: MINOXIDIL
  26. MIRALAX [Concomitant]
     Active Substance: POLYETHYLENE GLYCOL 3350
  27. CALCITROL [Concomitant]
     Active Substance: CALCITRIOL
  28. CLATRATE AND D [Concomitant]
  29. MULTIVITAMIN [Concomitant]
     Active Substance: VITAMINS
  30. OMEPRAZOLE. [Concomitant]
     Active Substance: OMEPRAZOLE
  31. RENALGEL [Concomitant]
  32. HYDRALAZINE [Concomitant]
     Active Substance: HYDRALAZINE HYDROCHLORIDE

REACTIONS (4)
  - Peritonitis [None]
  - Staphylococcal infection [None]
  - Fall [None]
  - Arthralgia [None]

NARRATIVE: CASE EVENT DATE: 20140727
